FAERS Safety Report 11819368 (Version 5)
Quarter: 2024Q4

REPORT INFORMATION
  Report Type: Spontaneous
  Country: US (occurrence: US)
  Receive Date: 20151210
  Receipt Date: 20241201
  Transmission Date: 20250115
  Serious: Yes (Other)
  Sender: JOHNSON AND JOHNSON
  Company Number: US-JNJFOC-20151117855

PATIENT
  Age: 18 Year
  Sex: Male

DRUGS (8)
  1. RISPERDAL [Suspect]
     Active Substance: RISPERIDONE
     Indication: Bipolar disorder
     Route: 048
     Dates: start: 2011, end: 2012
  2. RISPERDAL [Suspect]
     Active Substance: RISPERIDONE
     Indication: Hallucination
     Route: 048
     Dates: start: 20110719
  3. RISPERDAL [Suspect]
     Active Substance: RISPERIDONE
     Indication: Thinking abnormal
     Route: 048
     Dates: start: 2012, end: 2013
  4. RISPERDAL [Suspect]
     Active Substance: RISPERIDONE
     Indication: Psychotic disorder
  5. RISPERDAL [Suspect]
     Active Substance: RISPERIDONE
     Indication: Bipolar disorder
     Route: 048
     Dates: start: 20110719
  6. RISPERDAL [Suspect]
     Active Substance: RISPERIDONE
     Indication: Schizoaffective disorder
  7. DEPAKOTE [Suspect]
     Active Substance: DIVALPROEX SODIUM
     Indication: Bipolar disorder
  8. DEPAKOTE [Suspect]
     Active Substance: DIVALPROEX SODIUM
     Indication: Psychotic disorder

REACTIONS (8)
  - Gynaecomastia [Unknown]
  - Akathisia [Unknown]
  - Abnormal weight gain [Unknown]
  - Emotional disorder [Unknown]
  - Insomnia [Unknown]
  - Vomiting [Unknown]
  - Headache [Unknown]
  - Dizziness [Unknown]

NARRATIVE: CASE EVENT DATE: 20110809
